FAERS Safety Report 19464695 (Version 2)
Quarter: 2021Q2

REPORT INFORMATION
  Report Type: Spontaneous
  Country: AR (occurrence: AR)
  Receive Date: 20210626
  Receipt Date: 20210626
  Transmission Date: 20210717
  Serious: Yes (Other)
  Sender: FDA-Public Use
  Company Number: NVSC2021AR141212

PATIENT
  Sex: Male

DRUGS (1)
  1. ONBRIZE BREEZHALER [Suspect]
     Active Substance: INDACATEROL MALEATE
     Indication: PNEUMONIA
     Dosage: 1 DF, QD (300 OF 1)
     Route: 065

REACTIONS (3)
  - Choking [Unknown]
  - Dyspnoea [Unknown]
  - Off label use [Unknown]
